FAERS Safety Report 18280866 (Version 2)
Quarter: 2022Q4

REPORT INFORMATION
  Report Type: Spontaneous
  Country: DE (occurrence: DE)
  Receive Date: 20200918
  Receipt Date: 20221201
  Transmission Date: 20230112
  Serious: Yes (Hospitalization)
  Sender: FDA-Public Use
  Company Number: None

PATIENT
  Age: 86 Year
  Sex: Female
  Weight: 60 kg

DRUGS (3)
  1. CARBIDOPA\LEVODOPA [Suspect]
     Active Substance: CARBIDOPA\LEVODOPA
     Indication: Product used for unknown indication
     Dosage: 25 100 MG, 1.5-1.5-1.5-0,  TABLET
  2. METOPROLOL [Suspect]
     Active Substance: METOPROLOL
     Indication: Product used for unknown indication
     Dosage: 100 MG, 0.5-0-0-0, PROLONGED-RELEASE TABLET
  3. LEVOTHYROXINE SODIUM [Concomitant]
     Active Substance: LEVOTHYROXINE SODIUM
     Dosage: 75 MCG, 1-0-0-0,  TABLET

REACTIONS (5)
  - Mucosal haemorrhage [Recovering/Resolving]
  - Fall [Unknown]
  - Musculoskeletal pain [Recovering/Resolving]
  - Fracture [Recovering/Resolving]
  - General physical health deterioration [Recovering/Resolving]
